FAERS Safety Report 9455271 (Version 1)
Quarter: 2013Q2

REPORT INFORMATION
  Report Type: Spontaneous
  Country: AR (occurrence: None)
  Receive Date: 20130610
  Receipt Date: 20130610
  Transmission Date: 20140414
  Serious: Yes (Other)
  Sender: FDA-Public Use
  Company Number: 006022

PATIENT
  Age: 34 Year
  Sex: Female

DRUGS (2)
  1. OPC-41061 [Suspect]
     Indication: CONGENITAL CYSTIC KIDNEY DISEASE
     Route: 048
     Dates: start: 20080723, end: 20090324
  2. PROGESTERONE [Concomitant]

REACTIONS (3)
  - Hepatitis toxic [None]
  - Toothache [None]
  - Overdose [None]
